FAERS Safety Report 21176274 (Version 5)
Quarter: 2024Q4

REPORT INFORMATION
  Report Type: Report from Study
  Country: KR (occurrence: KR)
  Receive Date: 20220805
  Receipt Date: 20241022
  Transmission Date: 20250115
  Serious: Yes (Death, Life-Threatening)
  Sender: NOVARTIS
  Company Number: KR-NOVARTISPH-NVSC2022KR176862

PATIENT
  Age: 51 Year
  Sex: Female
  Weight: 69.6 kg

DRUGS (16)
  1. RYDAPT [Suspect]
     Active Substance: MIDOSTAURIN
     Indication: Acute myeloid leukaemia
     Dosage: 50 MG, QD
     Route: 048
     Dates: start: 20220714, end: 20220714
  2. RYDAPT [Suspect]
     Active Substance: MIDOSTAURIN
     Dosage: 50 MG, BID
     Route: 048
     Dates: start: 20220715, end: 20220727
  3. RYDAPT [Suspect]
     Active Substance: MIDOSTAURIN
     Dosage: 50 MG, QD
     Route: 048
     Dates: start: 20220728, end: 20220728
  4. NOXAFIL [Concomitant]
     Active Substance: POSACONAZOLE
     Indication: Infection prophylaxis
     Dosage: 300 MG
     Route: 048
     Dates: start: 20220707
  5. CYTARABINE [Concomitant]
     Active Substance: CYTARABINE
     Indication: Acute myeloid leukaemia
     Dosage: 352 MG
     Route: 042
     Dates: start: 20220707, end: 20220713
  6. Zoylex [Concomitant]
     Indication: Infection prophylaxis
     Dosage: 250 MG
     Route: 042
     Dates: start: 20220707
  7. DAUNORUBICIN HYDROCHLORIDE [Concomitant]
     Active Substance: DAUNORUBICIN HYDROCHLORIDE
     Indication: Acute myeloid leukaemia
     Dosage: 158.4 MG
     Route: 042
     Dates: start: 20220707, end: 20220709
  8. Hydrin [Concomitant]
     Indication: Acute myeloid leukaemia
     Dosage: 3000 MG
     Route: 048
     Dates: start: 20220630, end: 20220701
  9. Hydrin [Concomitant]
     Dosage: 1000 MG
     Route: 048
     Dates: start: 20220702, end: 20220703
  10. PROPACETAMOL HYDROCHLORIDE [Concomitant]
     Active Substance: PROPACETAMOL HYDROCHLORIDE
     Indication: Pyrexia
     Dosage: 1 G, PRN
     Route: 042
     Dates: start: 20220630
  11. URSODIOL [Concomitant]
     Active Substance: URSODIOL
     Indication: Hepatectomy
     Dosage: 200 MG
     Route: 048
     Dates: start: 20220706, end: 20220713
  12. NAXEN S [Concomitant]
     Indication: Prophylaxis
     Dosage: 2 DOSAGE FORM
     Route: 048
     Dates: start: 20220706, end: 20220721
  13. LASIX [Concomitant]
     Active Substance: FUROSEMIDE
     Indication: Pain
     Dosage: 20 MG
     Route: 042
     Dates: start: 20220707
  14. CIPROCTAN [Concomitant]
     Indication: Prophylaxis
     Dosage: 2 DOSAGE FORM
     Route: 048
     Dates: start: 20220707, end: 20220715
  15. ZYPREXA [Concomitant]
     Active Substance: OLANZAPINE
     Indication: Prophylaxis
     Dosage: 1 DOSAGE FORM
     Route: 048
     Dates: start: 20220707, end: 20220727
  16. ALLOPURINOL [Concomitant]
     Active Substance: ALLOPURINOL
     Indication: Prophylaxis
     Dosage: 3 DOSAGE FORM
     Route: 048
     Dates: start: 20220629, end: 20220709

REACTIONS (2)
  - Pneumonia [Fatal]
  - Diarrhoea [Recovered/Resolved]

NARRATIVE: CASE EVENT DATE: 20220714
